FAERS Safety Report 8368275-4 (Version None)
Quarter: 2012Q2

REPORT INFORMATION
  Report Type: 
  Country: None (occurrence: None)
  Receive Date: 20120517
  Receipt Date: 20120514
  Transmission Date: 20120825
  Serious: Yes (Hospitalization)
  Sender: FDA-Public Use
  Company Number: US-BAYER-2011-082058

PATIENT
  Age: 32 Year
  Sex: Female
  Weight: 57 kg

DRUGS (37)
  1. MAGNESIUM [Concomitant]
     Indication: BLOOD MAGNESIUM DECREASED
  2. FLUCONAZOLE [Concomitant]
     Dosage: 150 MG, UNK
     Route: 048
     Dates: start: 20080515
  3. NSAID'S [Concomitant]
     Indication: DYSMENORRHOEA
     Dosage: UNK UNK, PRN
  4. KETOROLAC TROMETHAMINE [Concomitant]
     Indication: MIGRAINE
  5. ZOLMITRIPTAN [Concomitant]
     Indication: MIGRAINE
  6. TREXIMET [Concomitant]
     Indication: MIGRAINE
  7. TOPAMAX [Concomitant]
     Indication: MIGRAINE
     Dosage: 50 MG, UNK
     Route: 048
     Dates: start: 20071109
  8. ZOMIG [Concomitant]
     Indication: MIGRAINE
  9. ZOFRAN [Concomitant]
     Indication: VOMITING
  10. IMITREX [Concomitant]
     Indication: MIGRAINE
     Dosage: UNK UNK, PRN
  11. EFFEXOR [Concomitant]
     Dosage: 75 MG, UNK
     Route: 048
     Dates: start: 20080610
  12. ASCORBIC ACID [Concomitant]
  13. NSAID'S [Concomitant]
     Indication: PAIN
  14. NSAID'S [Concomitant]
     Indication: HEADACHE
  15. ZOFRAN [Concomitant]
     Indication: NAUSEA
  16. COMPAZINE [Concomitant]
  17. CIPROFLOXACIN [Concomitant]
     Dosage: UNK
     Route: 048
     Dates: start: 20080606
  18. SUMAVEL DOSEPRO INJECTIONS [Concomitant]
  19. ACETAMINOPHEN AND OXYCODONE HCL [Concomitant]
     Indication: PAIN
     Dosage: UNK
     Route: 048
     Dates: start: 20080606, end: 20080625
  20. ACETAMINOPHEN AND OXYCODONE HCL [Concomitant]
     Dosage: UNK
     Route: 048
     Dates: start: 20080606, end: 20080625
  21. TOPIRAMATE [Concomitant]
     Indication: MIGRAINE
     Dosage: UNK
     Dates: start: 20080218, end: 20080515
  22. MIGRANAL [Concomitant]
     Indication: MIGRAINE
     Route: 045
  23. DHE [DIHYDROERGOTAMINE MESILATE] [Concomitant]
     Indication: MIGRAINE
  24. DROSPIRENONE AND ETHINYL ESTRADIOL [Suspect]
     Indication: CONTRACEPTION
     Dates: start: 20070730, end: 20091127
  25. FOLIC ACID [Concomitant]
     Dosage: 1 MG, UNK
     Route: 048
     Dates: start: 20070706, end: 20080101
  26. MULTIVITAMINS WITH MINERALS [MULTIVITAMINS WITH MINERALS] [Concomitant]
  27. ZOMIG [Concomitant]
     Dosage: UNK UNK, PRN
  28. SULFAMETHOXAZOLE [Concomitant]
     Dosage: UNK
     Route: 048
     Dates: start: 20080625
  29. YASMIN [Suspect]
     Indication: CONTRACEPTION
     Dates: start: 20070730, end: 20091127
  30. PREVACID [Concomitant]
     Indication: GASTROOESOPHAGEAL REFLUX DISEASE
     Dosage: 150 UNK, UNK
     Route: 048
  31. DIHYDROERGOTAMINE MESYLATE [Concomitant]
     Indication: MIGRAINE
  32. SUMATRIPTAN SUCCINATE [Concomitant]
     Indication: MIGRAINE
  33. ANTIHYPERTENSIVES [Concomitant]
     Indication: MIGRAINE
  34. PRILOSEC [Concomitant]
     Indication: GASTROOESOPHAGEAL REFLUX DISEASE
     Dosage: UNK
     Dates: start: 20050101
  35. ANTIBIOTICS [Concomitant]
     Indication: URINARY TRACT INFECTION
  36. FLUCONAZOLE [Concomitant]
  37. BACTRIM [Concomitant]

REACTIONS (10)
  - CHOLECYSTITIS CHRONIC [None]
  - INJURY [None]
  - RENAL FAILURE ACUTE [None]
  - MENTAL DISORDER [None]
  - PANCREATITIS ACUTE [None]
  - APPENDICECTOMY [None]
  - GALLBLADDER DISORDER [None]
  - PAIN [None]
  - CHOLELITHIASIS [None]
  - APPENDICITIS PERFORATED [None]
